FAERS Safety Report 5157256-X (Version None)
Quarter: 2006Q4

REPORT INFORMATION
  Report Type: 
  Country: None (occurrence: None)
  Receive Date: 20061127
  Receipt Date: 20061002
  Transmission Date: 20070319
  Serious: Yes (Other)
  Sender: FDA-Public Use
  Company Number: PHBS2006JP15507

PATIENT
  Age: 74 Year
  Sex: Male

DRUGS (6)
  1. ASPIRIN [Concomitant]
     Dosage: 100 MG/D
     Route: 048
  2. FAMOTIDINE [Concomitant]
     Dosage: 20 MG/D
     Route: 048
  3. HARNAL [Concomitant]
     Dosage: 0.2 MG/D
     Route: 048
  4. HARNAL [Concomitant]
     Dosage: 0.2 MG/D
     Route: 048
  5. DRUG THERAPY NOS [Suspect]
  6. LAMISIL [Suspect]
     Indication: NAIL TINEA
     Dosage: UNK, UNK
     Route: 048
     Dates: start: 20060712

REACTIONS (2)
  - GENERAL PHYSICAL CONDITION ABNORMAL [None]
  - PROSTATIC SPECIFIC ANTIGEN INCREASED [None]
